FAERS Safety Report 7061763-2 (Version None)
Quarter: 2010Q4

REPORT INFORMATION
  Report Type: 
  Country: None (occurrence: None)
  Receive Date: 20101026
  Receipt Date: 20101018
  Transmission Date: 20110411
  Serious: Yes (Hospitalization)
  Sender: FDA-Public Use
  Company Number: DE-ROCHE-734998

PATIENT
  Age: 58 Year
  Sex: Female

DRUGS (5)
  1. MYCOPHENOLATE MOFETIL [Suspect]
     Route: 065
  2. RITUXIMAB [Suspect]
     Indication: IMMUNOSUPPRESSANT DRUG THERAPY
     Route: 065
  3. TACROLIMUS [Suspect]
     Indication: IMMUNOSUPPRESSION
     Route: 065
  4. STEROID NOS [Suspect]
     Indication: IMMUNOSUPPRESSION
     Route: 065
  5. RABBIT ANTITHYMOCYTE GLOBULIN [Suspect]
     Dosage: INDUCTION
     Route: 065

REACTIONS (4)
  - PNEUMONIA [None]
  - RENAL FAILURE ACUTE [None]
  - SEPSIS [None]
  - TRANSPLANT REJECTION [None]
